FAERS Safety Report 8562103-X (Version None)
Quarter: 2012Q3

REPORT INFORMATION
  Report Type: 
  Country: None (occurrence: None)
  Receive Date: 20120802
  Receipt Date: 20120705
  Transmission Date: 20120928
  Serious: No
  Sender: FDA-Public Use
  Company Number: US-AMGEN-USASP2012041675

PATIENT
  Age: 17 Year
  Sex: Female

DRUGS (1)
  1. ENBREL [Suspect]
     Indication: JUVENILE ARTHRITIS
     Dosage: UNK
     Dates: start: 20120411

REACTIONS (5)
  - INJECTION SITE REACTION [None]
  - INFLUENZA [None]
  - INJECTION SITE RASH [None]
  - INJECTION SITE PAIN [None]
  - STREPTOCOCCAL INFECTION [None]
